FAERS Safety Report 5697860-3 (Version None)
Quarter: 2008Q2

REPORT INFORMATION
  Report Type: 
  Country: None (occurrence: None)
  Receive Date: 20080408
  Receipt Date: 20080213
  Transmission Date: 20081010
  Serious: Yes (Other)
  Sender: FDA-Public Use
  Company Number: US-PURDUE-USA_2008_0032080

PATIENT
  Sex: Male

DRUGS (1)
  1. OXYCONTIN [Suspect]
     Indication: BACK PAIN
     Dosage: UNK MG, UNK
     Route: 048
     Dates: start: 20001006, end: 20020401

REACTIONS (4)
  - BACK DISORDER [None]
  - DRUG DEPENDENCE [None]
  - INTERVERTEBRAL DISC PROTRUSION [None]
  - NERVE INJURY [None]
